FAERS Safety Report 10192933 (Version 1)
Quarter: 2014Q2

REPORT INFORMATION
  Report Type: Spontaneous
  Country: US (occurrence: US)
  Receive Date: 20140523
  Receipt Date: 20140523
  Transmission Date: 20141212
  Serious: No
  Sender: FDA-Public Use
  Company Number: US-009507513-1405USA006309

PATIENT
  Age: 65 Year
  Sex: Female

DRUGS (1)
  1. ZOCOR [Suspect]
     Route: 048

REACTIONS (28)
  - Type 2 diabetes mellitus [Unknown]
  - Chronic obstructive pulmonary disease [Unknown]
  - Coronary artery disease [Unknown]
  - Sleep apnoea syndrome [Unknown]
  - Hyperlipidaemia [Unknown]
  - Hyperthyroidism [Unknown]
  - Hypertension [Unknown]
  - Diabetic neuropathy [Unknown]
  - Back pain [Unknown]
  - Vascular insufficiency [Unknown]
  - Obesity [Unknown]
  - Fall [Unknown]
  - Tobacco abuse [Unknown]
  - Hypertension [Unknown]
  - Anxiety [Unknown]
  - Cholelithiasis [Unknown]
  - Coronary artery disease [Unknown]
  - Wrist fracture [Unknown]
  - Mobility decreased [Unknown]
  - Gravitational oedema [Unknown]
  - Sinusitis [Unknown]
  - Polyneuropathy [Unknown]
  - Gastrooesophageal reflux disease [Unknown]
  - Dyspnoea [Unknown]
  - Asthenia [Unknown]
  - Hypersensitivity [Unknown]
  - Anaemia [Unknown]
  - Diarrhoea [Unknown]
